FAERS Safety Report 6346677-5 (Version None)
Quarter: 2009Q3

REPORT INFORMATION
  Report Type: 
  Country: None (occurrence: None)
  Receive Date: 20090904
  Receipt Date: 20090824
  Transmission Date: 20100115
  Serious: Yes (Hospitalization)
  Sender: FDA-Public Use
  Company Number: 2009AP003454

PATIENT
  Age: 70 Year
  Sex: Male

DRUGS (2)
  1. OMEPRAZOLE [Suspect]
     Dosage: 20 MG;PO
     Route: 048
     Dates: start: 20090530, end: 20090730
  2. DICLOFENAC SODIUM [Suspect]
     Indication: ARTHRALGIA
     Dosage: 50 MG;PO;TID
     Route: 048
     Dates: start: 20090530, end: 20090730

REACTIONS (1)
  - RENAL FAILURE ACUTE [None]
